FAERS Safety Report 8847303 (Version 2)
Quarter: 2012Q4

REPORT INFORMATION
  Report Type: 
  Country: US (occurrence: US)
  Receive Date: 20121018
  Receipt Date: 20121123
  Transmission Date: 20130627
  Serious: No
  Sender: FDA-Public Use
  Company Number: US-PFIZER INC-2012255060

PATIENT
  Age: 44 Year
  Sex: Male
  Weight: 87.53 kg

DRUGS (3)
  1. GENOTROPIN [Suspect]
     Indication: PITUITARY INSUFFICIENCY
     Dosage: 0.2 mg, daily
     Dates: start: 20120920
  2. EFEXOR XR [Concomitant]
     Indication: DEPRESSION
     Dosage: 70 mg, daily
  3. TESTOSTERONE [Concomitant]
     Dosage: 100 mg, 2x/month

REACTIONS (2)
  - Injection site pain [Recovered/Resolved]
  - Injection site discomfort [Recovered/Resolved]
